FAERS Safety Report 13955748 (Version 1)
Quarter: 2017Q3

REPORT INFORMATION
  Report Type: Other
  Country: US (occurrence: US)
  Receive Date: 20170911
  Receipt Date: 20170911
  Transmission Date: 20171128
  Serious: Yes (Other)
  Sender: FDA-Public Use
  Company Number: US-OSMOTICA_PHARMACEUTICAL_US_LLC-POI0573201700040

PATIENT
  Sex: Female

DRUGS (2)
  1. PROGESTIN [Suspect]
     Active Substance: PROGESTERONE
  2. DIVIGEL [Suspect]
     Active Substance: ESTRADIOL

REACTIONS (3)
  - Uterine haemorrhage [Unknown]
  - Uterine polyp [Unknown]
  - Endometrial hyperplasia [Unknown]

NARRATIVE: CASE EVENT DATE: 2016
